FAERS Safety Report 7055475-9 (Version None)
Quarter: 2010Q4

REPORT INFORMATION
  Report Type: 
  Country: None (occurrence: None)
  Receive Date: 20101021
  Receipt Date: 20101013
  Transmission Date: 20110411
  Serious: Yes (Hospitalization)
  Sender: FDA-Public Use
  Company Number: JP-JNJFOC-20100508116

PATIENT
  Sex: Female
  Weight: 48 kg

DRUGS (18)
  1. DOXORUBICIN HYDROCHLORIDE [Suspect]
     Indication: OVARIAN CANCER RECURRENT
     Dosage: COURSE 4
     Route: 042
  2. DOXORUBICIN HYDROCHLORIDE [Suspect]
     Dosage: COURSE 3
     Route: 042
  3. DOXORUBICIN HYDROCHLORIDE [Suspect]
     Dosage: COURSE 2
     Route: 042
  4. DOXORUBICIN HYDROCHLORIDE [Suspect]
     Dosage: COURSE 1
     Route: 042
  5. RAMELTEON [Concomitant]
     Indication: PROPHYLAXIS
     Route: 042
  6. VITAMEDIN [Concomitant]
     Indication: PROPHYLAXIS
     Route: 042
  7. DECADRON [Concomitant]
     Indication: PROPHYLAXIS
     Route: 048
  8. DECADRON [Concomitant]
     Route: 048
  9. DECADRON [Concomitant]
     Route: 048
  10. AZUNOL [Concomitant]
     Indication: PROPHYLAXIS
     Route: 048
  11. ALOSENN [Concomitant]
     Indication: CONSTIPATION
     Route: 048
  12. LECICARBON [Concomitant]
     Indication: CONSTIPATION
     Route: 054
  13. LAXOBERON [Concomitant]
     Indication: CONSTIPATION
     Route: 048
  14. TOFRANIL MITE [Concomitant]
     Indication: STRESS URINARY INCONTINENCE
     Route: 048
  15. SPIROPENT [Concomitant]
     Indication: PRODUCT USED FOR UNKNOWN INDICATION
     Route: 048
  16. VOLTAREN [Concomitant]
     Indication: MALIGNANT ASCITES
     Route: 048
  17. SELBEX [Concomitant]
     Indication: GASTRITIS
     Route: 048
  18. MUCOSTA [Concomitant]
     Indication: PROPHYLAXIS
     Route: 042

REACTIONS (3)
  - CANCER PAIN [None]
  - ILEUS [None]
  - PSEUDOMEMBRANOUS COLITIS [None]
